FAERS Safety Report 8215373-1 (Version None)
Quarter: 2012Q1

REPORT INFORMATION
  Report Type: 
  Country: None (occurrence: None)
  Receive Date: 20120314
  Receipt Date: 20120307
  Transmission Date: 20120608
  Serious: Yes (Other)
  Sender: FDA-Public Use
  Company Number: ADR-2010-9732

PATIENT
  Sex: Male

DRUGS (3)
  1. LIORESAL [Suspect]
     Indication: MUSCLE SPASTICITY
     Dosage: SEE B5 MCG, DAILY, INTRATHECAL
     Route: 037
  2. LIORESAL [Suspect]
     Indication: BRAIN INJURY
     Dosage: SEE B5 MCG, DAILY, INTRATHECAL
     Route: 037
  3. LIORESAL [Suspect]
     Indication: SPINAL CORD INJURY
     Dosage: SEE B5 MCG, DAILY, INTRATHECAL
     Route: 037

REACTIONS (1)
  - NO THERAPEUTIC RESPONSE [None]
